FAERS Safety Report 23423337 (Version 1)
Quarter: 2024Q1

REPORT INFORMATION
  Report Type: Spontaneous
  Country: US (occurrence: None)
  Receive Date: 20240119
  Receipt Date: 20240119
  Transmission Date: 20240409
  Serious: Yes (Other)
  Sender: FDA-Public Use
  Company Number: None

PATIENT
  Age: 61 Year
  Sex: Female

DRUGS (1)
  1. EMGALITY [Suspect]
     Active Substance: GALCANEZUMAB-GNLM
     Indication: Migraine
     Dosage: EVERY 4 WEEKS SUBCUTANEOUS?
     Route: 058
     Dates: start: 20230624

REACTIONS (3)
  - Chest pain [None]
  - Nausea [None]
  - Coronary artery dissection [None]

NARRATIVE: CASE EVENT DATE: 20231213
